FAERS Safety Report 18617043 (Version 1)
Quarter: 2020Q4

REPORT INFORMATION
  Report Type: Report from Study
  Country: GB (occurrence: GB)
  Receive Date: 20201215
  Receipt Date: 20201215
  Transmission Date: 20210114
  Serious: Yes (Other)
  Sender: FDA-Public Use
  Company Number: GB-TAKEDA-2020TUS057576

PATIENT
  Age: 83 Year
  Sex: Female

DRUGS (1)
  1. IXAZOMIB [Suspect]
     Active Substance: IXAZOMIB
     Indication: PLASMA CELL MYELOMA
     Dosage: 3 MILLIGRAM
     Route: 048
     Dates: start: 20181219

REACTIONS (5)
  - Dyspepsia [Recovered/Resolved]
  - Neuropathy peripheral [Unknown]
  - Muscle spasms [Unknown]
  - Insomnia [Unknown]
  - Pain in extremity [Unknown]
